FAERS Safety Report 9815063 (Version 1)
Quarter: 2014Q1

REPORT INFORMATION
  Report Type: Spontaneous
  Country: US (occurrence: US)
  Receive Date: 20140114
  Receipt Date: 20140114
  Transmission Date: 20141002
  Serious: No
  Sender: FDA-Public Use
  Company Number: US-009507513-1401USA003795

PATIENT
  Sex: Female

DRUGS (2)
  1. IMPLANON [Suspect]
     Indication: CONTRACEPTION
     Dosage: 1 DF, UNK
     Route: 059
     Dates: start: 2012
  2. IMPLANON [Suspect]
     Dosage: 1 DF, FOR 3 YEARS
     Route: 059
     Dates: start: 2009, end: 2012

REACTIONS (2)
  - Haemorrhage [Unknown]
  - Metrorrhagia [Unknown]
